FAERS Safety Report 7879835-9 (Version None)
Quarter: 2011Q4

REPORT INFORMATION
  Report Type: 
  Country: None (occurrence: None)
  Receive Date: 20111101
  Receipt Date: 20111026
  Transmission Date: 20120403
  Serious: Yes (Hospitalization)
  Sender: FDA-Public Use
  Company Number: JP-B.I. PHARMACEUTICALS,INC./RIDGEFIELD-2011-BP-17891NB

PATIENT
  Sex: Female
  Weight: 40 kg

DRUGS (7)
  1. SLOW-K [Concomitant]
     Indication: HYPOKALAEMIA
     Dosage: 1200 MG
     Route: 048
  2. REBAMIPIDE [Suspect]
     Indication: GASTRITIS
     Route: 048
     Dates: start: 20110610, end: 20110629
  3. PRADAXA [Suspect]
     Indication: THROMBOSIS PROPHYLAXIS
     Dosage: 220 MG
     Route: 048
     Dates: start: 20110516, end: 20110629
  4. LOXONIN [Concomitant]
     Route: 065
  5. MAGNESIUM SULFATE [Concomitant]
     Indication: CONSTIPATION
     Route: 048
     Dates: end: 20110610
  6. CELECOXIB [Suspect]
     Indication: PAIN
     Route: 048
     Dates: start: 20110610, end: 20110629
  7. LANSOPRAZOLE [Concomitant]
     Indication: GASTROOESOPHAGEAL REFLUX DISEASE
     Dosage: 15 MG
     Route: 048

REACTIONS (3)
  - JAUNDICE [None]
  - LYMPHOCYTE STIMULATION TEST POSITIVE [None]
  - LIVER DISORDER [None]
